FAERS Safety Report 15352324 (Version 3)
Quarter: 2018Q4

REPORT INFORMATION
  Report Type: Report from Study
  Country: BR (occurrence: BR)
  Receive Date: 20180905
  Receipt Date: 20181127
  Transmission Date: 20190204
  Serious: Yes (Other)
  Sender: FDA-Public Use
  Company Number: BR-TAKEDA-2018MPI011137

PATIENT
  Age: 59 Year
  Sex: Female
  Weight: 78.5 kg

DRUGS (11)
  1. DEXAMETHASONE. [Suspect]
     Active Substance: DEXAMETHASONE
     Dosage: 40 MG, UNK
     Route: 042
     Dates: start: 20170516
  2. DEXAMETHASONE. [Suspect]
     Active Substance: DEXAMETHASONE
     Dosage: 16 MG, UNK
     Route: 048
     Dates: start: 20180103, end: 20180307
  3. CYCLOPHOSPHAMIDE. [Suspect]
     Active Substance: CYCLOPHOSPHAMIDE
     Dosage: 300 MG/M2, UNK
     Route: 042
     Dates: start: 20170516
  4. THALOMID [Concomitant]
     Active Substance: THALIDOMIDE
     Dosage: 100 MG, QD
     Route: 048
     Dates: start: 20180103, end: 20180513
  5. BORTEZOMIB. [Suspect]
     Active Substance: BORTEZOMIB
     Indication: PLASMA CELL MYELOMA
     Dosage: 2.3 MG, UNK
     Route: 058
     Dates: start: 20170213, end: 20171213
  6. BORTEZOMIB. [Suspect]
     Active Substance: BORTEZOMIB
     Dosage: 1.3 MG/M2, UNK
     Route: 058
     Dates: start: 20180103, end: 20180307
  7. REVLIMID [Concomitant]
     Active Substance: LENALIDOMIDE
     Dosage: 15 MG, UNK
     Route: 048
     Dates: start: 20180704
  8. CYCLOPHOSPHAMIDE. [Suspect]
     Active Substance: CYCLOPHOSPHAMIDE
     Indication: PLASMA CELL MYELOMA
     Dosage: 300 MG/M2, UNK
     Route: 042
     Dates: start: 20170213
  9. DARZALEX [Concomitant]
     Active Substance: DARATUMUMAB
     Dosage: 16 MG/KG, 1/WEEK
     Route: 042
     Dates: start: 20180410
  10. DEXAMETHASONE. [Suspect]
     Active Substance: DEXAMETHASONE
     Indication: PLASMA CELL MYELOMA
     Dosage: 40 MG, UNK
     Route: 042
     Dates: start: 20170213
  11. REVLIMID [Concomitant]
     Active Substance: LENALIDOMIDE
     Dosage: 25 MG, UNK
     Route: 048
     Dates: start: 20180514, end: 20180606

REACTIONS (1)
  - Intraductal proliferative breast lesion [Recovered/Resolved with Sequelae]

NARRATIVE: CASE EVENT DATE: 20170510
